FAERS Safety Report 5545671-1 (Version None)
Quarter: 2007Q4

REPORT INFORMATION
  Report Type: 
  Country: None (occurrence: None)
  Receive Date: 20071211
  Receipt Date: 20071204
  Transmission Date: 20080405
  Serious: Yes (Hospitalization)
  Sender: FDA-Public Use
  Company Number: JP-AVENTIS-200712780JP

PATIENT
  Age: 44 Year
  Sex: Female
  Weight: 55 kg

DRUGS (2)
  1. ALLEGRA [Suspect]
     Indication: RHINITIS ALLERGIC
     Route: 048
     Dates: start: 20070301, end: 20071017
  2. ONON [Concomitant]
     Indication: RHINITIS ALLERGIC
     Route: 048
     Dates: start: 20070301, end: 20071017

REACTIONS (3)
  - ASTHENIA [None]
  - JAUNDICE [None]
  - LIVER DISORDER [None]
